FAERS Safety Report 9690541 (Version 1)
Quarter: 2013Q4

REPORT INFORMATION
  Report Type: Spontaneous
  Country: DE (occurrence: DE)
  Receive Date: 20131115
  Receipt Date: 20131115
  Transmission Date: 20140711
  Serious: Yes (Other)
  Sender: FDA-Public Use
  Company Number: DE-DRREDDYS-GER/GER/13/0035588

PATIENT
  Age: 36 Year
  Sex: Female
  Weight: 58 kg

DRUGS (7)
  1. LAMOTRIGINE [Suspect]
     Indication: EPILEPSY
     Dosage: 300 [MG/D ]/ BEGIN OF PREGN: 2X50MG; IN THE END 2X150MG
     Route: 048
     Dates: start: 20120211, end: 20121029
  2. EPIRUBICIN [Suspect]
     Indication: BREAST CANCER
     Dosage: 156 [MG ]/ TWICE DURING PREGN. 14.9. AND 05.10.
     Route: 042
     Dates: start: 20120914, end: 20121005
  3. CYCLOPHOSPHAMIDE [Suspect]
     Indication: BREAST CANCER
     Dosage: 1040 [MG ]/ TWICE DURING PREGN. 14.9. AND 05.10.
     Route: 042
     Dates: start: 20120914, end: 20121005
  4. FOLSAURE RATIOPHARM [Concomitant]
     Indication: PROPHYLAXIS OF NEURAL TUBE DEFECT
     Dosage: 5 [MG/D ]
     Route: 048
     Dates: start: 20120211, end: 20121029
  5. FILGRASTIM [Concomitant]
     Indication: CHEMOTHERAPY
     Dosage: TWICE DURING PREGN. 14.9. AND 05.10.
     Route: 042
     Dates: start: 20120915, end: 20121006
  6. DEXAMETHASONE [Concomitant]
     Indication: PROPHYLAXIS OF NAUSEA AND VOMITING
     Dosage: TWICE DURING PREGN. 14.9. AND 05.10.
     Route: 065
     Dates: start: 20120914, end: 20121005
  7. ONDANSETRON [Concomitant]
     Indication: PROPHYLAXIS OF NAUSEA AND VOMITING
     Dosage: TWICE DURING PREGN. 14.9. AND 05.10.
     Route: 065
     Dates: start: 20120914, end: 20121005

REACTIONS (3)
  - Premature rupture of membranes [Unknown]
  - Caesarean section [Unknown]
  - Exposure during pregnancy [Unknown]
